FAERS Safety Report 7604374-X (Version None)
Quarter: 2011Q3

REPORT INFORMATION
  Report Type: 
  Country: None (occurrence: None)
  Receive Date: 20110712
  Receipt Date: 20110708
  Transmission Date: 20111222
  Serious: Yes (Other)
  Sender: FDA-Public Use
  Company Number: US-PFIZER INC-2011154647

PATIENT
  Sex: Female

DRUGS (1)
  1. PRISTIQ [Suspect]
     Dosage: UNK
     Dates: start: 20080401

REACTIONS (4)
  - BLOOD CHOLESTEROL INCREASED [None]
  - HOT FLUSH [None]
  - FIBROMYALGIA [None]
  - MIGRAINE [None]
